FAERS Safety Report 19988612 (Version 1)
Quarter: 2021Q4

REPORT INFORMATION
  Report Type: Spontaneous
  Country: US (occurrence: US)
  Receive Date: 20211024
  Receipt Date: 20211024
  Transmission Date: 20220303
  Serious: Yes (Other)
  Sender: FDA-Public Use
  Company Number: US-JNJFOC-20211025605

PATIENT
  Sex: Female

DRUGS (1)
  1. ELMIRON [Suspect]
     Active Substance: PENTOSAN POLYSULFATE SODIUM
     Indication: Cystitis interstitial
     Route: 048
     Dates: start: 2012, end: 2020

REACTIONS (5)
  - Vision blurred [Unknown]
  - Central vision loss [Unknown]
  - Maculopathy [Unknown]
  - Retinal dystrophy [Unknown]
  - Photophobia [Unknown]

NARRATIVE: CASE EVENT DATE: 20200101
